FAERS Safety Report 4492549-0 (Version None)
Quarter: 2004Q4

REPORT INFORMATION
  Report Type: 
  Country: None (occurrence: None)
  Receive Date: 20041029
  Receipt Date: 20041020
  Transmission Date: 20050328
  Serious: Yes (Other)
  Sender: FDA-Public Use
  Company Number: DE-SHR-04-022940

PATIENT
  Age: 36 Year
  Sex: Female

DRUGS (1)
  1. MIRENA [Suspect]
     Dosage: 20 UG/DAY, CONT, INTRA-UTERINE
     Route: 015
     Dates: start: 20030901, end: 20040308

REACTIONS (13)
  - ABDOMINAL PAIN LOWER [None]
  - BACK PAIN [None]
  - BREAST PAIN [None]
  - CHILLS [None]
  - DEPRESSION [None]
  - GENITAL HAEMORRHAGE [None]
  - HEADACHE [None]
  - LOSS OF LIBIDO [None]
  - MIGRAINE [None]
  - PAIN IN EXTREMITY [None]
  - POST PROCEDURAL PAIN [None]
  - THYROID NEOPLASM [None]
  - WITHDRAWAL BLEED [None]
